FAERS Safety Report 9505414 (Version 1)
Quarter: 2013Q1

REPORT INFORMATION
  Report Type: Spontaneous
  Country: US (occurrence: None)
  Receive Date: 20130220
  Receipt Date: 20130220
  Transmission Date: 20140127
  Serious: No
  Sender: FDA-Public Use
  Company Number: 1000041434

PATIENT
  Age: 75 Year
  Sex: Female
  Weight: 66 kg

DRUGS (3)
  1. VIIBRYD (VILAZODONE HYDROCHLORIDE) [Suspect]
     Indication: DEPRESSION
     Route: 048
     Dates: start: 20121101
  2. VIIBRYD (VILAZODONE HYDROCHLORIDE) [Suspect]
     Indication: ANXIETY
     Route: 048
     Dates: start: 20121101
  3. FENTANYL [Suspect]
     Indication: BACK PAIN
     Dosage: 75MCG ( 1 IN 72 HR), TRANSDERMAL
     Route: 062
     Dates: start: 20121013

REACTIONS (4)
  - Hyperventilation [None]
  - Depression [None]
  - Dry mouth [None]
  - Anxiety [None]
